FAERS Safety Report 10067331 (Version 1)
Quarter: 2014Q2

REPORT INFORMATION
  Report Type: Spontaneous
  Country: IT (occurrence: None)
  Receive Date: 20140407
  Receipt Date: 20140407
  Transmission Date: 20141212
  Serious: Yes (Other)
  Sender: FDA-Public Use
  Company Number: AUR-APL-2014-04049

PATIENT
  Age: 30 Year
  Sex: Male

DRUGS (7)
  1. OLANZAPINE [Suspect]
     Indication: PSYCHOTIC DISORDER
  2. CARBAMAZEPINE [Suspect]
     Indication: PRODUCT USED FOR UNKNOWN INDICATION
  3. RIFAMPICIN [Suspect]
     Indication: BRAIN ABSCESS
  4. PIPERACILLIN [Suspect]
     Indication: BRAIN ABSCESS
  5. FOSFOMYCIN [Suspect]
     Indication: BRAIN ABSCESS
  6. CYAMEMAZINE [Concomitant]
  7. CEFOTAXIME [Concomitant]

REACTIONS (3)
  - Cholestasis [None]
  - Drug reaction with eosinophilia and systemic symptoms [None]
  - Drug interaction [None]
